FAERS Safety Report 9449973 (Version 1)
Quarter: 2013Q3

REPORT INFORMATION
  Report Type: Spontaneous
  Country: FR (occurrence: FR)
  Receive Date: 20130809
  Receipt Date: 20130809
  Transmission Date: 20140515
  Serious: Yes (Death)
  Sender: FDA-Public Use
  Company Number: FR-SANOFI-AVENTIS-2013SA078061

PATIENT
  Age: 87 Year
  Sex: Male

DRUGS (4)
  1. DAONIL [Suspect]
     Indication: DIABETES MELLITUS
     Route: 048
     Dates: end: 20130609
  2. PREVISCAN [Suspect]
     Indication: ATRIAL FIBRILLATION
     Route: 048
     Dates: end: 20130609
  3. ATENOLOL [Suspect]
     Indication: HYPERTENSION
     Route: 048
     Dates: end: 20130609
  4. PHYSIOTENS [Suspect]
     Indication: HYPERTENSION
     Route: 048
     Dates: end: 20130609

REACTIONS (3)
  - Hydrocephalus [Fatal]
  - Cerebellar haematoma [Fatal]
  - Coma [Fatal]
